FAERS Safety Report 8871847 (Version 2)
Quarter: 2013Q2

REPORT INFORMATION
  Report Type: Spontaneous
  Country: US (occurrence: US)
  Receive Date: 20121023
  Receipt Date: 20130412
  Transmission Date: 20140414
  Serious: Yes (Life-Threatening, Hospitalization)
  Sender: FDA-Public Use
  Company Number: US-ASTELLAS-2012US007144

PATIENT
  Age: 56 Year
  Sex: Female

DRUGS (4)
  1. PROGRAF [Suspect]
     Indication: STEM CELL TRANSPLANT
     Dosage: 1 MG, BID
     Route: 048
     Dates: start: 20080613
  2. PROGRAF [Suspect]
     Indication: BONE MARROW TRANSPLANT
     Dosage: 0.5 MG, AM
     Route: 065
     Dates: start: 20111215
  3. PROGRAF [Suspect]
     Indication: LYMPHOMA
     Dosage: 1 MG, PM
     Dates: start: 20111216
  4. PROGRAF [Suspect]
     Indication: FUNGAL INFECTION
     Dosage: 1 MG, BID
     Route: 048

REACTIONS (2)
  - Off label use [Unknown]
  - Myocardial infarction [Recovering/Resolving]
